FAERS Safety Report 4970057-8 (Version None)
Quarter: 2006Q2

REPORT INFORMATION
  Report Type: 
  Country: None (occurrence: None)
  Receive Date: 20060406
  Receipt Date: 20060307
  Transmission Date: 20061013
  Serious: Yes (Hospitalization, Disabling)
  Sender: FDA-Public Use
  Company Number: 200603486

PATIENT
  Sex: Female

DRUGS (1)
  1. BOTOX [Suspect]
     Indication: TORTICOLLIS
     Dates: start: 20020203, end: 20020203

REACTIONS (12)
  - ACTIVITIES OF DAILY LIVING IMPAIRED [None]
  - ADRENOCORTICAL INSUFFICIENCY CHRONIC [None]
  - ARTHRALGIA [None]
  - AUTOIMMUNE THYROIDITIS [None]
  - FATIGUE [None]
  - HEPATIC CYST [None]
  - LUNG NEOPLASM [None]
  - MALAISE [None]
  - MUSCULOSKELETAL STIFFNESS [None]
  - PAIN [None]
  - RASH [None]
  - SERUM SICKNESS [None]
